FAERS Safety Report 5196331-0 (Version None)
Quarter: 2007Q1

REPORT INFORMATION
  Report Type: 
  Country: None (occurrence: None)
  Receive Date: 20070102
  Receipt Date: 20061222
  Transmission Date: 20070707
  Serious: Yes (Other)
  Sender: FDA-Public Use
  Company Number: BR-PFIZER INC-2006155515

PATIENT

DRUGS (1)
  1. SILDENAFIL (PAH) [Suspect]
     Indication: PULMONARY HYPERTENSION
     Route: 048

REACTIONS (2)
  - GENERAL PHYSICAL HEALTH DETERIORATION [None]
  - PULMONARY HYPERTENSION [None]
